FAERS Safety Report 17647527 (Version 2)
Quarter: 2020Q2

REPORT INFORMATION
  Report Type: Report from Study
  Country: US (occurrence: US)
  Receive Date: 20200408
  Receipt Date: 20200417
  Transmission Date: 20200713
  Serious: No
  Sender: FDA-Public Use
  Company Number: US-AGIOS-2003US01746

PATIENT

DRUGS (2)
  1. DACOGEN [Concomitant]
     Active Substance: DECITABINE
     Indication: PRODUCT USED FOR UNKNOWN INDICATION
  2. TIBSOVO [Suspect]
     Active Substance: IVOSIDENIB
     Dosage: UNK
     Dates: start: 202002

REACTIONS (3)
  - Hydrocele [Recovered/Resolved]
  - Diarrhoea [Recovered/Resolved]
  - Varicocele [Recovered/Resolved]
